FAERS Safety Report 8089189-3 (Version None)
Quarter: 2012Q1

REPORT INFORMATION
  Report Type: 
  Country: None (occurrence: None)
  Receive Date: 20120128
  Receipt Date: 20110712
  Transmission Date: 20120608
  Serious: No
  Sender: FDA-Public Use
  Company Number: US-ABBOTT-11P-163-0732030-00

PATIENT
  Sex: Female
  Weight: 61.29 kg

DRUGS (11)
  1. FENTANYL [Concomitant]
     Indication: PRODUCT USED FOR UNKNOWN INDICATION
     Dosage: 25 MCG  PATCH - EVERY 3 DAYS
  2. ZYRTEC [Concomitant]
     Indication: PRODUCT USED FOR UNKNOWN INDICATION
     Dosage: 10 MG - DAILY
  3. HUMIRA [Suspect]
     Indication: SPINAL OSTEOARTHRITIS
     Dates: start: 20090101
  4. VICODIN [Concomitant]
     Indication: PAIN
     Dosage: 7.5 MG - AS NEEDED
  5. PREDNISONE TAB [Concomitant]
     Indication: SPINAL OSTEOARTHRITIS
  6. HUMIRA [Suspect]
     Indication: ARTHROPATHY
  7. LIDODERM [Concomitant]
     Indication: BACK PAIN
     Dosage: PATCH - AS NEEDED
  8. ACIPHEX [Concomitant]
     Indication: PRODUCT USED FOR UNKNOWN INDICATION
     Dosage: 20 MG - DAILY
  9. DURAGESIC-100 [Concomitant]
     Indication: PAIN
     Dosage: PATCH
  10. METHOTREXATE [Suspect]
     Indication: SPINAL OSTEOARTHRITIS
     Dosage: 2.5 MG - 4 TABS WEEKLY
     Dates: start: 20110501
  11. SINGULAIR [Concomitant]
     Indication: PRODUCT USED FOR UNKNOWN INDICATION
     Dosage: 10 MG - DAILY

REACTIONS (8)
  - INJECTION SITE URTICARIA [None]
  - HEPATIC ENZYME INCREASED [None]
  - DEVICE MALFUNCTION [None]
  - MOBILITY DECREASED [None]
  - INCORRECT DOSE ADMINISTERED [None]
  - DRUG INEFFECTIVE [None]
  - ARTHRALGIA [None]
  - INJECTION SITE PAIN [None]
